FAERS Safety Report 9540334 (Version 1)
Quarter: 2013Q3

REPORT INFORMATION
  Report Type: Spontaneous
  Country: US (occurrence: US)
  Receive Date: 20130920
  Receipt Date: 20130920
  Transmission Date: 20140515
  Serious: Yes (Other)
  Sender: FDA-Public Use
  Company Number: US-GLAXOSMITHKLINE-A1042110A

PATIENT
  Sex: 0

DRUGS (2)
  1. BENLYSTA [Suspect]
     Indication: SYSTEMIC LUPUS ERYTHEMATOSUS
     Route: 042
  2. NO CONCURRENT MEDICATION [Concomitant]

REACTIONS (2)
  - Lupus nephritis [Not Recovered/Not Resolved]
  - Proteinuria [Not Recovered/Not Resolved]
